FAERS Safety Report 20107629 (Version 1)
Quarter: 2021Q4

REPORT INFORMATION
  Report Type: Spontaneous
  Country: US (occurrence: None)
  Receive Date: 20211123
  Receipt Date: 20211123
  Transmission Date: 20220303
  Serious: Yes (Hospitalization)
  Sender: FDA-Public Use
  Company Number: None

PATIENT
  Age: 70 Year
  Sex: Male

DRUGS (11)
  1. FORTEO [Suspect]
     Active Substance: TERIPARATIDE
     Indication: Osteoporosis
     Dosage: FREQUENCY : DAILY;?
     Route: 058
     Dates: start: 20210713
  2. XTAMPZA ER [Concomitant]
     Active Substance: OXYCODONE
  3. OXYCODONE [Concomitant]
     Active Substance: OXYCODONE
  4. CLINDAMYCIN [Concomitant]
     Active Substance: CLINDAMYCIN
  5. PREDNISONE [Concomitant]
     Active Substance: PREDNISONE
  6. CEPHALEXIN [Concomitant]
     Active Substance: CEPHALEXIN
  7. AMOXICILLIN [Concomitant]
     Active Substance: AMOXICILLIN
  8. ACETAMINOPHEN\HYDROCODONE [Concomitant]
     Active Substance: ACETAMINOPHEN\HYDROCODONE
  9. ONDANSETRON [Concomitant]
     Active Substance: ONDANSETRON
  10. BUDESONIDE [Concomitant]
     Active Substance: BUDESONIDE
  11. LOSARTAN POTASSIUM [Concomitant]
     Active Substance: LOSARTAN POTASSIUM

REACTIONS (2)
  - Sepsis [None]
  - Infection [None]

NARRATIVE: CASE EVENT DATE: 20211104
